FAERS Safety Report 7163632-6 (Version None)
Quarter: 2010Q4

REPORT INFORMATION
  Report Type: 
  Country: None (occurrence: None)
  Receive Date: 20101215
  Receipt Date: 20100519
  Transmission Date: 20110411
  Serious: Yes (Other)
  Sender: FDA-Public Use
  Company Number: US-PFIZER INC-2009253682

PATIENT
  Sex: Female
  Weight: 90.7 kg

DRUGS (8)
  1. LYRICA [Suspect]
     Indication: NEUROPATHY PERIPHERAL
     Dosage: 50 MG, 1X/DAY
     Dates: start: 20090614, end: 20090802
  2. LYRICA [Suspect]
     Indication: FIBROMYALGIA
  3. ZOLOFT [Concomitant]
     Dosage: UNK
  4. CELEBREX [Concomitant]
     Dosage: UNK
  5. ZANAFLEX [Concomitant]
     Dosage: UNK
  6. VITAMINS WITH MINERALS [Concomitant]
     Dosage: UNK
  7. CALCIUM [Concomitant]
     Dosage: UNK
  8. PREDNISONE [Concomitant]
     Dosage: UNK

REACTIONS (7)
  - AGEUSIA [None]
  - C-REACTIVE PROTEIN INCREASED [None]
  - GLOSSITIS [None]
  - HYPOAESTHESIA ORAL [None]
  - PAIN [None]
  - PAROSMIA [None]
  - TONGUE ULCERATION [None]
